FAERS Safety Report 20152896 (Version 1)
Quarter: 2021Q4

REPORT INFORMATION
  Report Type: Spontaneous
  Country: US (occurrence: US)
  Receive Date: 20211206
  Receipt Date: 20211206
  Transmission Date: 20220303
  Serious: Yes (Life-Threatening, Other)
  Sender: FDA-Public Use
  Company Number: US-BRISTOL-MYERS SQUIBB COMPANY-BMS-2021-130353

PATIENT
  Age: 76 Year
  Sex: Male

DRUGS (1)
  1. ELIQUIS [Suspect]
     Active Substance: APIXABAN
     Indication: Pulmonary embolism
     Route: 065

REACTIONS (4)
  - Lower gastrointestinal haemorrhage [Unknown]
  - Duodenal ulcer haemorrhage [Unknown]
  - Shock haemorrhagic [Unknown]
  - Haemoglobin decreased [Unknown]
